FAERS Safety Report 18108707 (Version 1)
Quarter: 2020Q3

REPORT INFORMATION
  Report Type: Spontaneous
  Country: US (occurrence: US)
  Receive Date: 20200804
  Receipt Date: 20200804
  Transmission Date: 20201103
  Serious: No
  Sender: FDA-Public Use
  Company Number: US-AMAG PHARMACEUTICALS, INC.-AMAG202002433

PATIENT
  Age: 72 Year
  Sex: Female
  Weight: 79.45 kg

DRUGS (5)
  1. AMITRIPTYLINE [Concomitant]
     Active Substance: AMITRIPTYLINE
     Indication: DEPRESSION
  2. AMITRIPTYLINE [Concomitant]
     Active Substance: AMITRIPTYLINE
     Indication: PAIN
     Dosage: STARTED TAKING THIS ABOUT ^20 YEARS AGO.^ SHE TAKES 100MG PO EVERY NIGHT
     Route: 048
  3. CLOBETASOL [Concomitant]
     Active Substance: CLOBETASOL
     Indication: LICHEN SCLEROSUS
     Dosage: TAKES 0.05 MG TWICE A DAY FOR A WEEK THEN ONCE A DAY FOR A WEEK AND THEN TWICE A WEEK.
     Route: 061
  4. AMITRIPTYLINE [Concomitant]
     Active Substance: AMITRIPTYLINE
     Indication: INSOMNIA
  5. INTRAROSA [Suspect]
     Active Substance: PRASTERONE
     Indication: LICHEN SCLEROSUS
     Dosage: ONE INSERT EVERY NIGHT AT BEDTIME.
     Route: 067

REACTIONS (1)
  - Off label use [Unknown]

NARRATIVE: CASE EVENT DATE: 202007
